FAERS Safety Report 5555192-8 (Version None)
Quarter: 2007Q4

REPORT INFORMATION
  Report Type: 
  Country: None (occurrence: None)
  Receive Date: 20071213
  Receipt Date: 20070813
  Transmission Date: 20080405
  Serious: No
  Sender: FDA-Public Use
  Company Number: US-AMGEN-KDL208605

PATIENT
  Sex: Female

DRUGS (2)
  1. ENBREL [Suspect]
     Indication: RHEUMATOID ARTHRITIS
     Route: 058
     Dates: start: 20051128, end: 20070211
  2. ARAVA [Concomitant]
     Route: 048
     Dates: start: 20050101

REACTIONS (5)
  - CHEST PAIN [None]
  - DYSPNOEA [None]
  - HYPOAESTHESIA FACIAL [None]
  - INJECTION SITE IRRITATION [None]
  - PARAESTHESIA [None]
